FAERS Safety Report 24386583 (Version 1)
Quarter: 2024Q4

REPORT INFORMATION
  Report Type: Spontaneous
  Country: US (occurrence: US)
  Receive Date: 20241002
  Receipt Date: 20241002
  Transmission Date: 20250114
  Serious: Yes (Hospitalization)
  Sender: LUPIN
  Company Number: US-LUPIN PHARMACEUTICALS INC.-2024-09517

PATIENT
  Age: 41 Year
  Sex: Female

DRUGS (3)
  1. LEVETIRACETAM [Suspect]
     Active Substance: LEVETIRACETAM
     Indication: Hereditary ataxia
     Dosage: 3000 MILLIGRAM
     Route: 065
  2. PRIMIDONE [Suspect]
     Active Substance: PRIMIDONE
     Indication: Hereditary ataxia
     Dosage: 250 MILLIGRAM
     Route: 065
  3. BOTULINUM TOXIN NOS [Suspect]
     Active Substance: BOTULINUM TOXIN NOS
     Indication: Hereditary ataxia
     Dosage: UNK (TOTAL 235 UNITS)
     Route: 065

REACTIONS (1)
  - Treatment failure [Unknown]
